FAERS Safety Report 21964838 (Version 2)
Quarter: 2023Q1

REPORT INFORMATION
  Report Type: Spontaneous
  Country: JP (occurrence: JP)
  Receive Date: 20230207
  Receipt Date: 20230215
  Transmission Date: 20230418
  Serious: Yes (Other)
  Sender: FDA-Public Use
  Company Number: JP-TAIHO-2023-000716

PATIENT
  Age: 8 Decade
  Sex: Male

DRUGS (3)
  1. ABRAXANE [Suspect]
     Active Substance: PACLITAXEL
     Indication: Pancreatic carcinoma
     Dosage: DOSE NOT REPORTED/DAY; ON DAYS 1, 8, AND 15
     Route: 041
  2. GEMCITABINE [Concomitant]
     Active Substance: GEMCITABINE
     Indication: Pancreatic carcinoma
     Dosage: DOSE NOT REPORTED/DAY; ON DAYS 1, 8, AND 15
     Route: 041
  3. METFORMIN [Concomitant]
     Active Substance: METFORMIN HYDROCHLORIDE
     Indication: Product used for unknown indication
     Dosage: NI

REACTIONS (1)
  - Blood glucose abnormal [Unknown]
